FAERS Safety Report 8702850 (Version 2)
Quarter: 2012Q4

REPORT INFORMATION
  Report Type: 
  Country: DK (occurrence: DK)
  Receive Date: 20120803
  Receipt Date: 20120914
  Transmission Date: 20130627
  Serious: Yes (Hospitalization)
  Sender: FDA-Public Use
  Company Number: DK-JNJFOC-20120513266

PATIENT
  Age: 49 Year
  Sex: Female

DRUGS (9)
  1. XEPLION [Suspect]
     Indication: SCHIZOPHRENIA
     Route: 030
     Dates: start: 20120625
  2. XEPLION [Suspect]
     Indication: SCHIZOPHRENIA
     Route: 030
     Dates: start: 20120510
  3. SYMBICORT FORTE [Concomitant]
     Indication: ASTHMA
     Route: 065
  4. SPIRIVA [Concomitant]
     Indication: ASTHMA
     Route: 065
  5. TERBASMIN TURBUHALER [Concomitant]
     Indication: ASTHMA
     Dosage: when needed
     Route: 065
  6. LYSANTIN [Concomitant]
     Dosage: 50 mg x 3 when needed
     Route: 065
  7. TRUXAL [Concomitant]
     Dosage: when needed
     Route: 065
  8. RISPERIDONE [Concomitant]
     Route: 048
  9. RISPERIDONE [Concomitant]
     Dosage: at night
     Route: 048

REACTIONS (13)
  - Anxiety [Recovered/Resolved]
  - Pain [Unknown]
  - Speech disorder [Recovered/Resolved]
  - Thinking abnormal [Recovering/Resolving]
  - Insomnia [Recovered/Resolved]
  - Mania [Recovering/Resolving]
  - Confusional state [Recovering/Resolving]
  - Visual impairment [Unknown]
  - Musculoskeletal stiffness [Recovered/Resolved]
  - Dizziness [Unknown]
  - Flatulence [Unknown]
  - Fatigue [Unknown]
  - Dry mouth [Unknown]
